FAERS Safety Report 6596897-X (Version None)
Quarter: 2010Q1

REPORT INFORMATION
  Report Type: 
  Country: None (occurrence: None)
  Receive Date: 20100223
  Receipt Date: 20100209
  Transmission Date: 20100710
  Serious: No
  Sender: FDA-Public Use
  Company Number: US-ROXANE LABORATORIES, INC.-2010-RO-00146RO

PATIENT
  Age: 60 Year
  Sex: Female

DRUGS (4)
  1. PREDNISONE [Suspect]
     Indication: SINUS CONGESTION
     Dates: end: 20100129
  2. PREDNISONE [Suspect]
     Indication: EAR CONGESTION
  3. PREDNISONE [Suspect]
     Indication: DIZZINESS
  4. PREDNISONE [Suspect]
     Indication: OROPHARYNGEAL PAIN

REACTIONS (2)
  - EAR CONGESTION [None]
  - SINUS CONGESTION [None]
